FAERS Safety Report 7103742-2 (Version None)
Quarter: 2010Q4

REPORT INFORMATION
  Report Type: 
  Country: None (occurrence: None)
  Receive Date: 20101115
  Receipt Date: 20101111
  Transmission Date: 20110411
  Serious: Yes (Other)
  Sender: FDA-Public Use
  Company Number: AU-ABBOTT-10P-008-0685012-00

PATIENT
  Age: 78 Year
  Sex: Male

DRUGS (2)
  1. LUCRIN [Suspect]
     Indication: PROSTATE CANCER
     Dates: start: 20050201
  2. LUCRIN [Suspect]

REACTIONS (4)
  - INJECTION SITE PAIN [None]
  - INJECTION SITE SWELLING [None]
  - METASTASES TO BONE [None]
  - METASTASES TO LUNG [None]
